FAERS Safety Report 4516577-1 (Version None)
Quarter: 2004Q4

REPORT INFORMATION
  Report Type: 
  Country: None (occurrence: None)
  Receive Date: 20041202
  Receipt Date: 20041122
  Transmission Date: 20050328
  Serious: Yes (Hospitalization)
  Sender: FDA-Public Use
  Company Number: MA-BRISTOL-MYERS SQUIBB COMPANY-12772448

PATIENT
  Age: 7 Year
  Sex: Female

DRUGS (3)
  1. AMOXICILLIN [Suspect]
     Indication: UPPER RESPIRATORY TRACT INFECTION
  2. FLUCLOXACILLIN [Suspect]
  3. AMOXICILLIN + CLAVULANIC ACID [Suspect]

REACTIONS (7)
  - HAND AMPUTATION [None]
  - LEUKOCYTOCLASTIC VASCULITIS [None]
  - PERIPHERAL ISCHAEMIA [None]
  - PULMONARY HAEMORRHAGE [None]
  - PURPURA [None]
  - RENAL IMPAIRMENT [None]
  - SEPSIS [None]
